FAERS Safety Report 6746406-7 (Version None)
Quarter: 2010Q2

REPORT INFORMATION
  Report Type: 
  Country: None (occurrence: None)
  Receive Date: 20100528
  Receipt Date: 20100507
  Transmission Date: 20101027
  Serious: Yes (Hospitalization, Other)
  Sender: FDA-Public Use
  Company Number: ET-PFIZER INC-2010064929

PATIENT
  Age: 45 Year
  Sex: Female

DRUGS (1)
  1. ZITHROMAX [Suspect]
     Indication: TRACHOMA
     Dosage: 4 DF, UNK
     Route: 048

REACTIONS (3)
  - ABDOMINAL MASS [None]
  - GASTRITIS [None]
  - UPPER GASTROINTESTINAL HAEMORRHAGE [None]
